FAERS Safety Report 5520835-1 (Version None)
Quarter: 2007Q4

REPORT INFORMATION
  Report Type: 
  Country: None (occurrence: None)
  Receive Date: 20071119
  Receipt Date: 20071116
  Transmission Date: 20080405
  Serious: Yes (Hospitalization)
  Sender: FDA-Public Use
  Company Number: A0691462A

PATIENT
  Age: 83 Year
  Sex: Male

DRUGS (17)
  1. COREG [Suspect]
     Dosage: 12.5MG TWICE PER DAY
     Route: 048
     Dates: start: 20070501, end: 20071030
  2. COREG CR [Suspect]
     Dosage: 20MG PER DAY
     Route: 048
     Dates: start: 20071030
  3. PREDNISONE TAB [Concomitant]
  4. LANTUS [Concomitant]
  5. ALTACE [Concomitant]
  6. INSPRA [Concomitant]
  7. IRON [Concomitant]
  8. VITAMIN B-12 [Concomitant]
  9. MULTI-VITAMIN [Concomitant]
  10. FOLIC ACID [Concomitant]
  11. VITAMIN D [Concomitant]
  12. PROSCAR [Concomitant]
  13. FLOMAX [Concomitant]
  14. PLAVIX [Concomitant]
  15. ZOCOR [Concomitant]
  16. LEXAPRO [Concomitant]
  17. CLARINEX [Concomitant]

REACTIONS (5)
  - ASTHENIA [None]
  - BLOOD PRESSURE DECREASED [None]
  - FALL [None]
  - FATIGUE [None]
  - PALLOR [None]
